FAERS Safety Report 5841180-0 (Version None)
Quarter: 2008Q3

REPORT INFORMATION
  Report Type: 
  Country: None (occurrence: None)
  Receive Date: 20080811
  Receipt Date: 20080811
  Transmission Date: 20090109
  Serious: No
  Sender: FDA-Public Use
  Company Number: None

PATIENT
  Sex: Male

DRUGS (4)
  1. REVLIMID [Suspect]
     Indication: MULTIPLE MYELOMA
     Dosage: 15MG DAILY X21D/28D ORALLY
     Route: 048
     Dates: start: 20071115, end: 20080703
  2. OMEPRAZOLE [Concomitant]
  3. TERAZOSIN HCL [Concomitant]
  4. DEXAMETHASONE TAB [Concomitant]

REACTIONS (7)
  - ANOREXIA [None]
  - ASTHENIA [None]
  - BURNING SENSATION [None]
  - CONDITION AGGRAVATED [None]
  - HYPOKINESIA [None]
  - NAUSEA [None]
  - PAIN [None]
